FAERS Safety Report 4619546-6 (Version None)
Quarter: 2005Q1

REPORT INFORMATION
  Report Type: 
  Country: None (occurrence: None)
  Receive Date: 20050324
  Receipt Date: 20050311
  Transmission Date: 20050727
  Serious: Yes (Hospitalization)
  Sender: FDA-Public Use
  Company Number: 212618

PATIENT
  Age: 59 Year
  Sex: Male
  Weight: 68 kg

DRUGS (10)
  1. AVASTIN [Suspect]
     Indication: COLORECTAL CANCER
     Dosage: 350 MG, INTRAVENOUS
     Route: 042
     Dates: start: 20041213
  2. FLUOROURACIL [Concomitant]
  3. OXALIPLATIN (OXALIPLATIN) [Concomitant]
  4. LEUCOVORIN CALCIUM [Concomitant]
  5. DIOVAN [Concomitant]
  6. NIFEDICAL (NIFEDIPINE) [Concomitant]
  7. MAGNESIUM SULFATE [Concomitant]
  8. IMODIUM [Concomitant]
  9. COUMADIN [Concomitant]
  10. CALCIUM (CALCIUM NOS) [Concomitant]

REACTIONS (5)
  - DEHYDRATION [None]
  - METABOLIC ACIDOSIS [None]
  - PALMAR-PLANTAR ERYTHRODYSAESTHESIA SYNDROME [None]
  - RENAL FAILURE ACUTE [None]
  - TUMOUR LYSIS SYNDROME [None]
